FAERS Safety Report 18188403 (Version 2)
Quarter: 2022Q3

REPORT INFORMATION
  Report Type: Spontaneous
  Country: HN (occurrence: HN)
  Receive Date: 20200824
  Receipt Date: 20220909
  Transmission Date: 20221027
  Serious: Yes (Other)
  Sender: FDA-Public Use
  Company Number: HN-PFIZER INC-2020323806

PATIENT
  Age: 86 Year
  Sex: Female

DRUGS (1)
  1. NORVASC [Suspect]
     Active Substance: AMLODIPINE BESYLATE
     Dosage: 1 DF, DAILY
     Route: 048

REACTIONS (7)
  - Cerebrovascular accident [Unknown]
  - Walking disability [Unknown]
  - Mobility decreased [Unknown]
  - Obesity [Unknown]
  - COVID-19 [Unknown]
  - Feeling abnormal [Unknown]
  - Joint injury [Unknown]
